FAERS Safety Report 9163927 (Version 2)
Quarter: 2013Q2

REPORT INFORMATION
  Report Type: Spontaneous
  Country: US (occurrence: US)
  Receive Date: 20130314
  Receipt Date: 20130423
  Transmission Date: 20140414
  Serious: No
  Sender: FDA-Public Use
  Company Number: US-ASTRAZENECA-2013SE15228

PATIENT
  Sex: Female
  Weight: 54.4 kg

DRUGS (1)
  1. NEXIUM [Suspect]
     Indication: GASTROOESOPHAGEAL REFLUX DISEASE
     Route: 048
     Dates: start: 20130213

REACTIONS (3)
  - Oropharyngeal pain [Unknown]
  - Vocal cord disorder [Unknown]
  - Drug ineffective [Unknown]
